FAERS Safety Report 9115124 (Version 1)
Quarter: 2013Q1

REPORT INFORMATION
  Report Type: Spontaneous
  Country: US (occurrence: US)
  Receive Date: 20130225
  Receipt Date: 20130225
  Transmission Date: 20140127
  Serious: Yes (Other)
  Sender: FDA-Public Use
  Company Number: US-COVIDIEN/TYCO HEALTHCARE/MALLINCKRODT-T201103033

PATIENT
  Age: 15 Year
  Sex: Female

DRUGS (1)
  1. GABLOFEN [Suspect]
     Dosage: 315 MCG/DAY
     Route: 037

REACTIONS (4)
  - Hyperhidrosis [Recovered/Resolved]
  - Agitation [Recovered/Resolved]
  - Hypertonia [Recovered/Resolved]
  - Device failure [Recovered/Resolved]
